FAERS Safety Report 5080462-X (Version None)
Quarter: 2006Q3

REPORT INFORMATION
  Report Type: 
  Country: None (occurrence: None)
  Receive Date: 20060809
  Receipt Date: 20060731
  Transmission Date: 20061208
  Serious: Yes (Hospitalization, Other)
  Sender: FDA-Public Use
  Company Number: 200613311GDS

PATIENT
  Age: 77 Year
  Sex: Male
  Weight: 61 kg

DRUGS (21)
  1. SORAFENIB [Suspect]
     Indication: HEPATIC NEOPLASM MALIGNANT
     Dosage: 800 MG, QOD, ORAL
     Route: 048
     Dates: start: 20060516
  2. METFORMIN HYDROCHLORIDE [Concomitant]
  3. GLYBURIDE [Concomitant]
  4. LOSEC [Concomitant]
  5. CALCIUM WITH VITAMIN D [Concomitant]
  6. HIGH POTENCY MULTIVITAMIN [Concomitant]
  7. DIGOXIN [Concomitant]
  8. POTASSIUM CHLORIDE [Concomitant]
  9. AMILORIDE [Concomitant]
  10. FUROSEMIDE [Concomitant]
  11. APO AMILZIDE [Concomitant]
  12. AVEENO BATH [Concomitant]
  13. IMODIUM [Concomitant]
  14. FLAMAZINE [Concomitant]
  15. WARFARIN [Concomitant]
  16. DIOVAN [Concomitant]
  17. NORVASC [Concomitant]
  18. HYDRALAZINE HYDROCHLORIDE [Concomitant]
  19. GRAVOL TAB [Concomitant]
  20. TAMSULOSIN HYDROCHLORIDE [Concomitant]
  21. ELECOM [Concomitant]

REACTIONS (1)
  - HYPOGLYCAEMIA [None]
